FAERS Safety Report 19646288 (Version 1)
Quarter: 2021Q3

REPORT INFORMATION
  Report Type: Spontaneous
  Country: DE (occurrence: DE)
  Receive Date: 20210802
  Receipt Date: 20210802
  Transmission Date: 20211014
  Serious: Yes (Death, Hospitalization)
  Sender: FDA-Public Use
  Company Number: DE-ORION CORPORATION ORION PHARMA-TREX2021-0043

PATIENT
  Age: 3 Year
  Sex: Female

DRUGS (2)
  1. PREDNISOLONE. [Suspect]
     Active Substance: PREDNISOLONE
     Indication: AUTOINFLAMMATORY DISEASE
     Route: 065
  2. METHOTREXATE. [Suspect]
     Active Substance: METHOTREXATE
     Indication: AUTOINFLAMMATORY DISEASE
     Route: 065

REACTIONS (11)
  - Cardiac failure acute [Unknown]
  - Metabolic acidosis [Unknown]
  - COVID-19 [Fatal]
  - Disseminated intravascular coagulation [Unknown]
  - Emotional distress [Unknown]
  - Multiple organ dysfunction syndrome [Fatal]
  - Product use in unapproved indication [Unknown]
  - Generalised tonic-clonic seizure [Unknown]
  - Cerebral infarction [Unknown]
  - Cerebral venous sinus thrombosis [Unknown]
  - Anxiety [Unknown]
